FAERS Safety Report 13923784 (Version 3)
Quarter: 2017Q4

REPORT INFORMATION
  Report Type: Spontaneous
  Country: US (occurrence: US)
  Receive Date: 20170831
  Receipt Date: 20171205
  Transmission Date: 20180320
  Serious: No
  Sender: FDA-Public Use
  Company Number: US-PFIZER INC-2017372929

PATIENT
  Age: 50 Year
  Sex: Female
  Weight: 240 kg

DRUGS (3)
  1. LYRICA [Suspect]
     Active Substance: PREGABALIN
     Indication: INTERVERTEBRAL DISC PROTRUSION
     Dosage: 100 MG, 3X/DAY
     Route: 048
     Dates: start: 20170823
  2. LYRICA [Suspect]
     Active Substance: PREGABALIN
     Indication: NECK PAIN
  3. LYRICA [Suspect]
     Active Substance: PREGABALIN
     Indication: BACK PAIN

REACTIONS (7)
  - Somnolence [Unknown]
  - Drug ineffective [Unknown]
  - Feeling abnormal [Unknown]
  - Pruritus generalised [Not Recovered/Not Resolved]
  - Abdominal discomfort [Not Recovered/Not Resolved]
  - Tongue discomfort [Unknown]
  - Headache [Not Recovered/Not Resolved]

NARRATIVE: CASE EVENT DATE: 2017
